FAERS Safety Report 24528878 (Version 1)
Quarter: 2024Q4

REPORT INFORMATION
  Report Type: Spontaneous
  Country: JP (occurrence: JP)
  Receive Date: 20241021
  Receipt Date: 20241021
  Transmission Date: 20250115
  Serious: Yes (Other)
  Sender: TERSERA THERAPEUTICS
  Company Number: JP-ASTRAZENECA-240077156_012620_P_1

PATIENT

DRUGS (24)
  1. GOSERELIN [Suspect]
     Active Substance: GOSERELIN
     Indication: Breast cancer
     Dosage: 3.8 MG
     Route: 058
  2. GOSERELIN [Suspect]
     Active Substance: GOSERELIN
     Dosage: 3.8 MG
     Route: 058
     Dates: start: 20211104
  3. ZOLADEX [Suspect]
     Active Substance: GOSERELIN ACETATE
     Indication: Breast cancer
     Dosage: UNK
     Route: 065
  4. TRUQAP [Suspect]
     Active Substance: CAPIVASERTIB
     Indication: Breast cancer recurrent
     Dosage: 200 MILLIGRAM, BID
     Route: 048
     Dates: start: 202407
  5. TRUQAP [Suspect]
     Active Substance: CAPIVASERTIB
     Dosage: ON A 4-DAYS-ON, 3-DAYS-OFF SCHEDULE)
     Route: 048
     Dates: start: 2024
  6. TRUQAP [Suspect]
     Active Substance: CAPIVASERTIB
     Dosage: 400 MILLIGRAM, BID, (ON A 4-DAYS-ON, 3-DAYS-OFF SCHEDULE)
     Route: 048
     Dates: start: 20240625
  7. TRUQAP [Suspect]
     Active Substance: CAPIVASERTIB
     Dosage: ON A 4-DAYS-ON, 3-DAYS-OFF SCHEDULE)
     Route: 048
     Dates: start: 20240811
  8. FASLODEX [Suspect]
     Active Substance: FULVESTRANT
     Indication: Breast cancer
     Dosage: 250 MG
     Route: 030
  9. FASLODEX [Suspect]
     Active Substance: FULVESTRANT
     Indication: Breast cancer recurrent
     Dosage: 250 MG
     Route: 030
     Dates: start: 20220607
  10. FASLODEX [Suspect]
     Active Substance: FULVESTRANT
     Dosage: 250 MG
     Route: 030
     Dates: start: 20231124
  11. FASLODEX [Suspect]
     Active Substance: FULVESTRANT
     Dosage: 250 MG
     Route: 030
     Dates: start: 20240625
  12. LYNPARZA [Suspect]
     Active Substance: OLAPARIB
     Indication: Breast cancer
     Dosage: 150 MG
     Route: 048
     Dates: start: 20220922
  13. VONOPRAZAN FUMARATE [Concomitant]
     Active Substance: VONOPRAZAN FUMARATE
     Indication: Abdominal pain upper
     Dosage: 10 MILLIGRAM, QD
     Route: 048
     Dates: start: 20240521, end: 20240716
  14. PALBOCICLIB [Concomitant]
     Active Substance: PALBOCICLIB
     Indication: Breast cancer
     Dosage: DOSE UNKNOWN
     Route: 065
     Dates: start: 20211104
  15. PALBOCICLIB [Concomitant]
     Active Substance: PALBOCICLIB
     Dosage: DOSE UNKNOWN
     Route: 065
     Dates: start: 20220607
  16. LETROZOLE [Concomitant]
     Active Substance: LETROZOLE
     Indication: Breast cancer
     Dosage: DOSE UNKNOWN
     Route: 065
     Dates: start: 20211104
  17. DENOSUMAB [Concomitant]
     Active Substance: DENOSUMAB
     Indication: Product used for unknown indication
     Dosage: DOSE UNKNOWN
     Route: 065
     Dates: start: 20211201
  18. VINORELBINE TARTRATE [Concomitant]
     Active Substance: VINORELBINE TARTRATE
     Indication: Breast cancer
     Dosage: DOSE UNKNOWN
     Route: 065
     Dates: start: 20230531, end: 20230927
  19. ABEMACICLIB [Concomitant]
     Active Substance: ABEMACICLIB
     Indication: Breast cancer
     Dosage: DOSE UNKNOWN
     Route: 065
     Dates: start: 20231124, end: 20231209
  20. PACLITAXEL [Concomitant]
     Active Substance: PACLITAXEL
     Indication: Breast cancer
     Dosage: DOSE UNKNOWN
     Route: 065
     Dates: start: 20240124
  21. BEVACIZUMAB [Concomitant]
     Active Substance: BEVACIZUMAB
     Indication: Breast cancer
     Dosage: DOSE UNKNOWN
     Route: 065
     Dates: start: 20240124
  22. DOXIFLURIDINE [Concomitant]
     Active Substance: DOXIFLURIDINE
     Indication: Breast cancer
     Dosage: DOSE UNKNOWN
     Route: 065
     Dates: start: 20240424, end: 20240531
  23. MEDROXYPROGESTERONE ACETATE [Concomitant]
     Active Substance: MEDROXYPROGESTERONE ACETATE
     Indication: Breast cancer
     Dosage: DOSE UNKNOWN
     Route: 065
     Dates: start: 20240424, end: 20240531
  24. CYCLOPHOSPHAMIDE [Concomitant]
     Active Substance: CYCLOPHOSPHAMIDE
     Indication: Breast cancer
     Dosage: DOSE UNKNOWN
     Route: 065
     Dates: start: 20240424, end: 20240531

REACTIONS (12)
  - Metastases to bone [Unknown]
  - Metastases to liver [Unknown]
  - Ascites [Unknown]
  - Hepatic function abnormal [Recovering/Resolving]
  - Tumour marker increased [Unknown]
  - Disorientation [Unknown]
  - Thrombomodulin increased [Unknown]
  - Adverse event [Unknown]
  - Keratitis [Unknown]
  - Diarrhoea [Unknown]
  - Abdominal pain [Unknown]
  - Oedema [Recovering/Resolving]

NARRATIVE: CASE EVENT DATE: 20220101
